FAERS Safety Report 7439142-5 (Version None)
Quarter: 2011Q2

REPORT INFORMATION
  Report Type: 
  Country: None (occurrence: None)
  Receive Date: 20110427
  Receipt Date: 20101215
  Transmission Date: 20111010
  Serious: Yes (Other)
  Sender: FDA-Public Use
  Company Number: US-BAYER-201014477NA

PATIENT
  Age: 29 Year
  Sex: Female
  Weight: 61.224 kg

DRUGS (2)
  1. YAZ [Suspect]
     Route: 048
     Dates: start: 20070901, end: 20080501
  2. XANAX [Concomitant]

REACTIONS (11)
  - VOMITING [None]
  - NAUSEA [None]
  - CHEST PAIN [None]
  - CHOLECYSTITIS CHRONIC [None]
  - CHILLS [None]
  - GALLBLADDER CHOLESTEROLOSIS [None]
  - CONSTIPATION [None]
  - WEIGHT DECREASED [None]
  - PAIN [None]
  - CHOLELITHIASIS [None]
  - PYREXIA [None]
